FAERS Safety Report 8286613-8 (Version None)
Quarter: 2012Q2

REPORT INFORMATION
  Report Type: 
  Country: None (occurrence: None)
  Receive Date: 20120411
  Receipt Date: 20120327
  Transmission Date: 20120825
  Serious: Yes (Other)
  Sender: FDA-Public Use
  Company Number: CA-008096

PATIENT
  Age: 84 Year
  Sex: Male

DRUGS (2)
  1. FIRMAGON [Suspect]
     Indication: PROSTATE CANCER
     Dosage: SUBCUTANEOUS
     Route: 058
     Dates: start: 20111202, end: 20120201
  2. BICALUTAMIDE [Concomitant]

REACTIONS (16)
  - WEIGHT DECREASED [None]
  - CHILLS [None]
  - MUSCULOSKELETAL PAIN [None]
  - ABDOMINAL PAIN [None]
  - FATIGUE [None]
  - CONSTIPATION [None]
  - BACK PAIN [None]
  - ABDOMINAL DISTENSION [None]
  - MALAISE [None]
  - CHEST PAIN [None]
  - ABASIA [None]
  - NECK PAIN [None]
  - NAUSEA [None]
  - HYPERSOMNIA [None]
  - DECREASED APPETITE [None]
  - ASTHENIA [None]
